FAERS Safety Report 4497471-1 (Version None)
Quarter: 2004Q4

REPORT INFORMATION
  Report Type: 
  Country: None (occurrence: None)
  Receive Date: 20041104
  Receipt Date: 20041025
  Transmission Date: 20050328
  Serious: Yes (Hospitalization)
  Sender: FDA-Public Use
  Company Number: ENTC2004-0204

PATIENT
  Age: 75 Year
  Sex: Female

DRUGS (1)
  1. STALEVO 100 [Suspect]
     Indication: PARKINSON'S DISEASE
     Dosage: TID
     Route: 048
     Dates: start: 20041001

REACTIONS (2)
  - CARDIAC DISORDER [None]
  - HYPERTENSIVE CRISIS [None]
